FAERS Safety Report 9115592 (Version 2)
Quarter: 2013Q1

REPORT INFORMATION
  Report Type: Spontaneous
  Country: US (occurrence: US)
  Receive Date: 20130225
  Receipt Date: 20130311
  Transmission Date: 20140127
  Serious: Yes (Other)
  Sender: FDA-Public Use
  Company Number: US-BAYER-2013-023043

PATIENT
  Age: 24 Year
  Sex: Female

DRUGS (1)
  1. MIRENA [Suspect]
     Dosage: 20 MCG/24HR, CONT
     Route: 015
     Dates: start: 20110107, end: 20110323

REACTIONS (12)
  - Uterine perforation [None]
  - Device breakage [None]
  - Gastric perforation [None]
  - Intestinal perforation [None]
  - Discomfort [None]
  - Procedural haemorrhage [None]
  - Back pain [None]
  - Abdominal pain [None]
  - Injury [None]
  - Medical device pain [None]
  - Infection [None]
  - Pain [None]
